FAERS Safety Report 4806131-6 (Version None)
Quarter: 2005Q4

REPORT INFORMATION
  Report Type: 
  Country: None (occurrence: None)
  Receive Date: 20051019
  Receipt Date: 20051019
  Transmission Date: 20060501
  Serious: Yes (Other)
  Sender: FDA-Public Use
  Company Number: None

PATIENT
  Age: 12 Year
  Sex: Female
  Weight: 49.8957 kg

DRUGS (1)
  1. RHINOCORT AQUA 32 MCQ ASTRAZENECA [Suspect]
     Indication: MULTIPLE ALLERGIES
     Dosage: AS DIRECTED NASAL
     Route: 045

REACTIONS (4)
  - ABNORMAL BEHAVIOUR [None]
  - ANGER [None]
  - PSYCHOMOTOR HYPERACTIVITY [None]
  - TEARFULNESS [None]
